FAERS Safety Report 16672681 (Version 1)
Quarter: 2019Q3

REPORT INFORMATION
  Report Type: Spontaneous
  Country: US (occurrence: US)
  Receive Date: 20190806
  Receipt Date: 20190806
  Transmission Date: 20191004
  Serious: Yes (Life-Threatening, Hospitalization, Other)
  Sender: FDA-Public Use
  Company Number: US-MYLANLABS-2019M1073086

PATIENT
  Age: 13 Year
  Sex: Female

DRUGS (4)
  1. CLINDAMYCIN. [Concomitant]
     Active Substance: CLINDAMYCIN
     Route: 061
  2. TAZAROTENE. [Concomitant]
     Active Substance: TAZAROTENE
     Route: 061
  3. SULPHAMETHOXAZOLE/TRIMETHOPRIM [Suspect]
     Active Substance: SULFAMETHOXAZOLE\TRIMETHOPRIM
     Indication: ACNE
     Route: 065
  4. BENZOYL PEROXIDE. [Concomitant]
     Active Substance: BENZOYL PEROXIDE
     Route: 061

REACTIONS (6)
  - Pleural effusion [Unknown]
  - Pneumomediastinum [Unknown]
  - Acute respiratory distress syndrome [Unknown]
  - Acute respiratory failure [Unknown]
  - Eosinophilic pneumonia [Unknown]
  - Pneumothorax [Unknown]
